FAERS Safety Report 9589879 (Version 1)
Quarter: 2013Q4

REPORT INFORMATION
  Report Type: Spontaneous
  Country: US (occurrence: US)
  Receive Date: 20131003
  Receipt Date: 20131003
  Transmission Date: 20140711
  Serious: No
  Sender: FDA-Public Use
  Company Number: US-AMGEN-USASP2012073562

PATIENT
  Sex: Female

DRUGS (3)
  1. ENBREL [Suspect]
     Indication: PSORIASIS
     Dosage: 50 MG/ML, 2 TIMES/WK
     Route: 058
  2. ZOLOFT [Concomitant]
     Dosage: 25 MG, UNK
  3. ORTHO-TRI-CYCLEN LO [Concomitant]
     Dosage: UNK

REACTIONS (2)
  - Injection site erythema [Unknown]
  - Injection site swelling [Unknown]
